FAERS Safety Report 13239011 (Version 1)
Quarter: 2017Q1

REPORT INFORMATION
  Report Type: Spontaneous
  Country: US (occurrence: US)
  Receive Date: 20170215
  Receipt Date: 20170215
  Transmission Date: 20170428
  Serious: Yes (Hospitalization)
  Sender: FDA-Public Use
  Company Number: None

PATIENT
  Age: 71 Year
  Sex: Female

DRUGS (1)
  1. POMALYST [Suspect]
     Active Substance: POMALIDOMIDE
     Indication: PLASMA CELL MYELOMA
     Route: 048
     Dates: start: 20170109

REACTIONS (6)
  - Night sweats [None]
  - Productive cough [None]
  - Dyspnoea [None]
  - Therapy cessation [None]
  - Chills [None]
  - Pneumonia [None]

NARRATIVE: CASE EVENT DATE: 20170130
